FAERS Safety Report 7787636-5 (Version None)
Quarter: 2011Q3

REPORT INFORMATION
  Report Type: 
  Country: None (occurrence: None)
  Receive Date: 20110929
  Receipt Date: 20110906
  Transmission Date: 20111222
  Serious: Yes (Other)
  Sender: FDA-Public Use
  Company Number: PHHY2011GB84784

PATIENT
  Age: 46 Year
  Sex: Male

DRUGS (2)
  1. ANTIHYPERTENSIVES [Concomitant]
     Dosage: UNK
  2. EVEROLIMUS [Suspect]
     Indication: METASTATIC RENAL CELL CARCINOMA
     Dates: start: 20090301

REACTIONS (5)
  - PHOTOSENSITIVITY REACTION [None]
  - MOUTH ULCERATION [None]
  - HYPERLIPIDAEMIA [None]
  - METABOLIC DISORDER [None]
  - SKIN ULCER [None]
